FAERS Safety Report 9480667 (Version 1)
Quarter: 2013Q3

REPORT INFORMATION
  Report Type: Spontaneous
  Country: US (occurrence: US)
  Receive Date: 20130828
  Receipt Date: 20130828
  Transmission Date: 20140515
  Serious: Yes (Hospitalization, Other)
  Sender: FDA-Public Use
  Company Number: US-AMGEN-KDL112456

PATIENT
  Age: 56 Year
  Sex: Male

DRUGS (4)
  1. ENBREL [Suspect]
     Indication: RHEUMATOID ARTHRITIS
     Dosage: 25 MG, 2 TIMES/WK
     Route: 058
     Dates: start: 20010101
  2. LEFLUNOMIDE [Concomitant]
  3. ROFECOXIB [Concomitant]
  4. INSULIN [Concomitant]

REACTIONS (5)
  - Myocardial infarction [Unknown]
  - Coronary artery disease [Unknown]
  - Alopecia [Unknown]
  - Injection site bruising [Unknown]
  - Injection site reaction [Unknown]
